FAERS Safety Report 13518486 (Version 7)
Quarter: 2021Q3

REPORT INFORMATION
  Report Type: Spontaneous
  Country: US (occurrence: US)
  Receive Date: 20170505
  Receipt Date: 20210712
  Transmission Date: 20211014
  Serious: Yes (Other)
  Sender: FDA-Public Use
  Company Number: US-BAYER-2017-085140

PATIENT
  Age: 34 Year
  Sex: Female

DRUGS (1)
  1. MIRENA [Suspect]
     Active Substance: LEVONORGESTREL
     Indication: CONTRACEPTION
     Dosage: 20 ?G PER DAY CONTINUOUSLY
     Route: 015
     Dates: start: 201608, end: 20170327

REACTIONS (4)
  - Pregnancy with contraceptive device [Recovered/Resolved]
  - Device dislocation [Recovered/Resolved]
  - Caesarean section [None]
  - Drug ineffective [None]

NARRATIVE: CASE EVENT DATE: 201612
